FAERS Safety Report 5819118-1 (Version None)
Quarter: 2008Q3

REPORT INFORMATION
  Report Type: 
  Country: None (occurrence: None)
  Receive Date: 20080723
  Receipt Date: 20080711
  Transmission Date: 20090109
  Serious: Yes (Other)
  Sender: FDA-Public Use
  Company Number: US-JNJFOC-20080703020

PATIENT
  Sex: Female
  Weight: 66.68 kg

DRUGS (1)
  1. DURAGESIC-100 [Suspect]
     Indication: PAIN
     Route: 062

REACTIONS (3)
  - CELLULITIS [None]
  - CEREBROVASCULAR ACCIDENT [None]
  - DRUG ADMINISTERED AT INAPPROPRIATE SITE [None]
